FAERS Safety Report 24632067 (Version 1)
Quarter: 2024Q4

REPORT INFORMATION
  Report Type: Spontaneous
  Country: MX (occurrence: None)
  Receive Date: 20241118
  Receipt Date: 20241118
  Transmission Date: 20250115
  Serious: Yes (Death, Hospitalization, Other)
  Sender: ORION
  Company Number: MX-Orion Corporation ORION PHARMA-ENTC2024-0142

PATIENT
  Age: 88 Year
  Sex: Female
  Weight: 60 kg

DRUGS (3)
  1. STALEVO [Suspect]
     Active Substance: CARBIDOPA\ENTACAPONE\LEVODOPA
     Indication: Parkinson^s disease
     Dosage: STRENGTH: 200/200/50 MG
     Dates: start: 2021
  2. RASAGILINE [Suspect]
     Active Substance: RASAGILINE
     Indication: Product used for unknown indication
  3. CLOZAPINE [Suspect]
     Active Substance: CLOZAPINE
     Indication: Product used for unknown indication

REACTIONS (1)
  - Death [Fatal]

NARRATIVE: CASE EVENT DATE: 20241110
